FAERS Safety Report 8262667-X (Version None)
Quarter: 2012Q2

REPORT INFORMATION
  Report Type: 
  Country: None (occurrence: None)
  Receive Date: 20120405
  Receipt Date: 20120327
  Transmission Date: 20120825
  Serious: Yes (Hospitalization)
  Sender: FDA-Public Use
  Company Number: JP-ASTRAZENECA-2012SE07688

PATIENT
  Age: 71 Year
  Sex: Male
  Weight: 48 kg

DRUGS (29)
  1. SPIRIVA [Concomitant]
     Indication: CHRONIC OBSTRUCTIVE PULMONARY DISEASE
     Route: 055
  2. THEO-DUR [Concomitant]
     Indication: ASTHMA
     Route: 048
  3. MUCOSOLVAN L [Concomitant]
     Indication: CHRONIC OBSTRUCTIVE PULMONARY DISEASE
     Route: 048
  4. MEPTIN AIR [Concomitant]
     Indication: ASTHMA
     Route: 055
  5. FAMOTIDINE [Concomitant]
     Indication: PROPHYLAXIS AGAINST GASTROINTESTINAL ULCER
     Route: 048
     Dates: start: 20101209, end: 20101211
  6. METHYLPREDNISOLONE SODIUM SUCCINATE [Concomitant]
     Route: 065
     Dates: start: 20110714, end: 20110714
  7. SYMBICORT [Suspect]
     Indication: ASTHMA
     Dosage: 4 DF TWO TIMES A DAY
     Route: 055
     Dates: start: 20100902
  8. ONON [Concomitant]
     Indication: ASTHMA
     Route: 048
  9. RISEDRONATE SODIUM [Concomitant]
     Indication: OSTEOPOROSIS
     Route: 048
  10. LEVOFLOXACIN [Concomitant]
     Indication: INFECTION PROPHYLAXIS
     Route: 048
     Dates: start: 20101204, end: 20101206
  11. LEVOFLOXACIN [Concomitant]
     Route: 048
     Dates: start: 20110826, end: 20110905
  12. ROCEPHIN [Suspect]
     Indication: BRONCHITIS
     Route: 065
     Dates: start: 20110714, end: 20110720
  13. DIART [Concomitant]
     Indication: CARDIAC FAILURE
     Route: 048
     Dates: start: 20110813, end: 20110816
  14. MEDICON [Concomitant]
     Indication: CHRONIC OBSTRUCTIVE PULMONARY DISEASE
     Route: 048
  15. MUCOSTA [Concomitant]
     Indication: PEPTIC ULCER
     Route: 048
  16. LEVOFLOXACIN [Concomitant]
     Route: 048
     Dates: start: 20110826, end: 20110905
  17. METHYLPREDNISOLONE SODIUM SUCCINATE [Concomitant]
     Route: 065
     Dates: start: 20110715, end: 20110725
  18. LEVOFLOXACIN [Concomitant]
     Indication: BRONCHITIS
     Route: 048
     Dates: start: 20101204, end: 20101206
  19. METHYLPREDNISOLONE SODIUM SUCCINATE [Concomitant]
     Route: 065
     Dates: start: 20110714, end: 20110714
  20. FAMOTIDINE [Concomitant]
     Indication: PROPHYLAXIS AGAINST GASTROINTESTINAL ULCER
     Route: 048
     Dates: start: 20110106, end: 20110111
  21. LOXONIN [Concomitant]
     Indication: SPINAL COMPRESSION FRACTURE
     Route: 048
  22. RABEPRAZOLE SODIUM [Concomitant]
     Indication: PEPTIC ULCER
     Route: 048
  23. PREDNISOLONE [Concomitant]
     Indication: ASTHMA
     Route: 048
     Dates: start: 20101209, end: 20101211
  24. PREDNISOLONE [Concomitant]
     Route: 048
     Dates: start: 20110106, end: 20110111
  25. METHYLPREDNISOLONE SODIUM SUCCINATE [Concomitant]
     Indication: CHRONIC OBSTRUCTIVE PULMONARY DISEASE
     Route: 065
     Dates: start: 20110106, end: 20110106
  26. UNIPHYL LA [Concomitant]
     Indication: ASTHMA
     Route: 048
  27. ALFAROL [Concomitant]
     Indication: OSTEOPOROSIS
     Route: 048
  28. METHYLPREDNISOLONE SODIUM SUCCINATE [Concomitant]
     Indication: ASTHMA
     Route: 065
     Dates: start: 20110106, end: 20110106
  29. METHYLPREDNISOLONE SODIUM SUCCINATE [Concomitant]
     Route: 065
     Dates: start: 20110715, end: 20110725

REACTIONS (7)
  - PNEUMONIA [None]
  - BRONCHITIS [None]
  - CHRONIC OBSTRUCTIVE PULMONARY DISEASE [None]
  - LUNG DISORDER [None]
  - RESPIRATORY FAILURE [None]
  - ASTHMA [None]
  - CARDIAC FAILURE [None]
